FAERS Safety Report 9897268 (Version 1)
Quarter: 2014Q1

REPORT INFORMATION
  Report Type: Spontaneous
  Country: PL (occurrence: PL)
  Receive Date: 20140214
  Receipt Date: 20140214
  Transmission Date: 20141002
  Serious: Yes (Hospitalization, Other)
  Sender: FDA-Public Use
  Company Number: PL-ROCHE-1345046

PATIENT
  Age: 46 Year
  Sex: Female

DRUGS (3)
  1. VEMURAFENIB [Suspect]
     Indication: SUPERFICIAL SPREADING MELANOMA STAGE UNSPECIFIED
     Route: 065
     Dates: start: 201302
  2. VEMURAFENIB [Suspect]
     Route: 065
  3. DEXAMETASON [Concomitant]
     Route: 065

REACTIONS (18)
  - Abdominal pain [Recovered/Resolved]
  - Abdominal pain upper [Recovered/Resolved]
  - Partial seizures with secondary generalisation [Unknown]
  - Metastases to central nervous system [Recovering/Resolving]
  - Brain oedema [Unknown]
  - Metastases to peritoneum [Recovering/Resolving]
  - Oedematous pancreatitis [Not Recovered/Not Resolved]
  - Lymphadenopathy [Recovering/Resolving]
  - Leukocytosis [Recovered/Resolved]
  - Hyperglycaemia [Recovered/Resolved]
  - Blood lactate dehydrogenase increased [Recovered/Resolved]
  - Pancreatic enzymes increased [Recovered/Resolved]
  - Ascites [Unknown]
  - Hypocalcaemia [Recovered/Resolved]
  - Hypoalbuminaemia [Recovered/Resolved]
  - C-reactive protein increased [Recovered/Resolved]
  - Rash papular [Unknown]
  - Seborrhoeic keratosis [Recovered/Resolved]
